FAERS Safety Report 8880181 (Version 2)
Quarter: 2013Q4

REPORT INFORMATION
  Report Type: Report from Study
  Country: FR (occurrence: FR)
  Receive Date: 20121101
  Receipt Date: 20131125
  Transmission Date: 20140711
  Serious: Yes (Other)
  Sender: FDA-Public Use
  Company Number: PHHO2012FR014333

PATIENT
  Age: 4 Year
  Sex: Male
  Weight: 20 kg

DRUGS (21)
  1. AFINITOR [Suspect]
     Indication: ASTROCYTOMA, LOW GRADE
     Dosage: 5 MG, QD
     Route: 048
     Dates: start: 20120215
  2. SABRIL [Concomitant]
     Indication: EPILEPSY
     Dosage: 2.5 G, QD (1G MORNING AND 1.5 G EVENING)
     Route: 048
     Dates: start: 20080418
  3. LAMICTAL [Concomitant]
     Indication: EPILEPSY
     Dosage: 100 MG, BID
     Route: 048
     Dates: start: 20100122
  4. RISPERDAL [Concomitant]
     Indication: ABNORMAL BEHAVIOUR
     Dosage: 1.25 ML, BID
     Route: 048
     Dates: start: 20100218
  5. KETOGAN [Concomitant]
     Indication: EPILEPSY
     Dosage: UNK
     Dates: start: 20090728
  6. IALUSET [Concomitant]
     Indication: SKIN ULCER
     Dosage: UNK
     Dates: start: 20120828, end: 20120831
  7. IALUSET [Concomitant]
     Dosage: UNK
     Dates: start: 20120901, end: 20120911
  8. VOGALENE [Concomitant]
     Indication: GASTRITIS
     Dosage: UNK
     Dates: start: 20120719, end: 20120719
  9. VOGALENE [Concomitant]
     Dosage: UNK
     Dates: start: 20120722
  10. AUGMENTIN [Concomitant]
     Indication: GASTRITIS
     Dosage: UNK
     Dates: start: 20120720, end: 20120728
  11. DOLIPRANE [Concomitant]
     Indication: GASTRITIS
     Dosage: UNK
     Dates: start: 20120719, end: 20120720
  12. DOLIPRANE [Concomitant]
     Dosage: UNK
     Dates: start: 20120730, end: 20120802
  13. ORELOX [Concomitant]
     Indication: RHINITIS
     Dosage: UNK
     Dates: start: 20120730, end: 20120805
  14. NORMACOL [Concomitant]
     Indication: ABDOMINAL PAIN
     Dosage: UNK
     Dates: start: 20120606, end: 20120606
  15. DEXERYL [Concomitant]
     Indication: DRY SKIN
     Dosage: UNK
     Dates: start: 20120409
  16. VENTOLINE [Concomitant]
     Indication: BRONCHITIS
     Dosage: UNK
     Dates: start: 20120220
  17. AMOXICILLIN [Concomitant]
     Indication: BRONCHITIS
     Dosage: UNK
     Dates: start: 20120220, end: 20120227
  18. DEBRIDAT [Concomitant]
     Indication: CONSTIPATION
     Dosage: UNK
     Dates: start: 201105
  19. FORLAX [Concomitant]
     Indication: CONSTIPATION
     Dosage: UNK
     Dates: start: 20090729
  20. UVEDOSE [Concomitant]
     Dosage: UNK
     Dates: start: 200907
  21. MOPRAL [Concomitant]
     Indication: GASTROOESOPHAGEAL REFLUX DISEASE
     Dosage: UNK
     Dates: start: 20090729

REACTIONS (3)
  - Subdural haematoma [Unknown]
  - Partial seizures [Unknown]
  - Concomitant disease aggravated [Unknown]
